FAERS Safety Report 23050351 (Version 1)
Quarter: 2023Q4

REPORT INFORMATION
  Report Type: Spontaneous
  Country: US (occurrence: None)
  Receive Date: 20231009
  Receipt Date: 20231009
  Transmission Date: 20240110
  Serious: Yes (Death, Hospitalization)
  Sender: FDA-Public Use
  Company Number: None

PATIENT
  Age: 75 Year
  Sex: Female
  Weight: 108 kg

DRUGS (1)
  1. TECVAYLI [Suspect]
     Active Substance: TECLISTAMAB-CQYV
     Indication: Plasma cell myeloma
     Dosage: OTHER FREQUENCY : WEEKLY;?
     Route: 058
     Dates: start: 20230628, end: 20230815

REACTIONS (2)
  - Immune effector cell-associated neurotoxicity syndrome [None]
  - Therapy cessation [None]

NARRATIVE: CASE EVENT DATE: 20230716
